FAERS Safety Report 5104113-0 (Version None)
Quarter: 2006Q3

REPORT INFORMATION
  Report Type: 
  Country: None (occurrence: None)
  Receive Date: 20060913
  Receipt Date: 20060913
  Transmission Date: 20061208
  Serious: Yes (Hospitalization)
  Sender: FDA-Public Use
  Company Number: AU-MERCK-0609AUS00103

PATIENT

DRUGS (1)
  1. FOSAMAX [Suspect]
     Route: 065

REACTIONS (1)
  - FALL [None]
